FAERS Safety Report 5575072-1 (Version None)
Quarter: 2007Q4

REPORT INFORMATION
  Report Type: 
  Country: None (occurrence: None)
  Receive Date: 20071130
  Receipt Date: 20070911
  Transmission Date: 20080405
  Serious: No
  Sender: FDA-Public Use
  Company Number: PHEH2007US11526

PATIENT
  Sex: Female

DRUGS (1)
  1. TEKTURNA [Suspect]
     Dosage: ORAL
     Route: 048

REACTIONS (3)
  - EAR PAIN [None]
  - HYPERSENSITIVITY [None]
  - NECK PAIN [None]
